FAERS Safety Report 7053585-3 (Version None)
Quarter: 2010Q4

REPORT INFORMATION
  Report Type: 
  Country: None (occurrence: None)
  Receive Date: 20101020
  Receipt Date: 20101015
  Transmission Date: 20110411
  Serious: Yes (Death, Hospitalization)
  Sender: FDA-Public Use
  Company Number: DE-ROCHE-717080

PATIENT
  Sex: Female
  Weight: 86 kg

DRUGS (11)
  1. TRASTUZUMAB [Suspect]
     Dosage: FORM: VIALS, DOSE LEVEL: 6 MG/KG,PERMANENTLY DISCONTINUED
     Route: 042
     Dates: start: 20100504, end: 20100722
  2. CARBOPLATIN [Suspect]
     Dosage: FORM: VIALS, DOSE LEVEL 5 AUC, DOSE REDUCED.
     Route: 042
     Dates: start: 20100504
  3. CARBOPLATIN [Suspect]
     Route: 042
     Dates: start: 20100615, end: 20100722
  4. DOCETAXEL [Suspect]
     Dosage: FORM: VIALS, DOSE LEVEL: 60 MG/M2, DOSE REDUCED.
     Route: 042
     Dates: start: 20100504
  5. DOCETAXEL [Suspect]
     Route: 042
     Dates: start: 20100615, end: 20100722
  6. CELLONDAN [Concomitant]
     Dates: start: 20100504, end: 20100722
  7. EMEND [Concomitant]
     Dates: start: 20100504, end: 20100722
  8. DEXAMETHASONE [Concomitant]
     Dates: start: 20100525, end: 20100722
  9. LOPERAMIDE [Concomitant]
     Dosage: TDD: MG
     Dates: start: 20100715, end: 20100722
  10. BISOPROLOL [Concomitant]
     Dates: end: 20100722
  11. MCP [Concomitant]
     Dates: start: 20100504, end: 20100722

REACTIONS (2)
  - DIARRHOEA [None]
  - DYSPNOEA [None]
